FAERS Safety Report 4592128-0 (Version None)
Quarter: 2005Q1

REPORT INFORMATION
  Report Type: 
  Country: None (occurrence: None)
  Receive Date: 20050125
  Receipt Date: 20040816
  Transmission Date: 20050727
  Serious: No
  Sender: FDA-Public Use
  Company Number: USA040875665

PATIENT
  Sex: Female

DRUGS (3)
  1. FORTEO [Suspect]
  2. ZOCOR [Concomitant]
  3. TOPROL-XL [Concomitant]

REACTIONS (3)
  - DIZZINESS [None]
  - SWELLING FACE [None]
  - SWOLLEN TONGUE [None]
